FAERS Safety Report 8802954 (Version 3)
Quarter: 2013Q1

REPORT INFORMATION
  Report Type: Report from Study
  Country: US (occurrence: US)
  Receive Date: 20120922
  Receipt Date: 20130327
  Transmission Date: 20140127
  Serious: Yes (Other)
  Sender: FDA-Public Use
  Company Number: US-US-EMD SERONO, INC.-7161840

PATIENT
  Sex: Female

DRUGS (7)
  1. REBIF [Suspect]
     Indication: MULTIPLE SCLEROSIS
     Route: 058
     Dates: start: 20070625
  2. DIOVAN [Concomitant]
     Indication: HYPERTENSION
  3. CARDIZEM LA [Concomitant]
     Indication: HYPERTENSION
  4. METFORMIN [Concomitant]
     Indication: DIABETES MELLITUS
  5. FLOMAX [Concomitant]
     Indication: BLADDER DISORDER
  6. CRESTOR [Concomitant]
     Indication: BLOOD CHOLESTEROL INCREASED
  7. CLONAZEPAM [Concomitant]
     Indication: SLEEP DISORDER

REACTIONS (6)
  - Gastric neoplasm [Recovered/Resolved]
  - Cerebral cyst [Not Recovered/Not Resolved]
  - Optic neuritis [Not Recovered/Not Resolved]
  - Macular degeneration [Not Recovered/Not Resolved]
  - Cataract operation [Recovering/Resolving]
  - Fatigue [Not Recovered/Not Resolved]
